FAERS Safety Report 13798403 (Version 1)
Quarter: 2017Q3

REPORT INFORMATION
  Report Type: Spontaneous
  Country: US (occurrence: US)
  Receive Date: 20170727
  Receipt Date: 20170727
  Transmission Date: 20171127
  Serious: No
  Sender: FDA-Public Use
  Company Number: US-BAYER-2017-139569

PATIENT
  Age: 75 Year
  Sex: Female

DRUGS (1)
  1. BETASERON [Suspect]
     Active Substance: INTERFERON BETA-1B
     Dosage: 0.3 MG, UNK

REACTIONS (3)
  - Injection site erythema [None]
  - Injection site induration [None]
  - Injection site pruritus [None]

NARRATIVE: CASE EVENT DATE: 20170520
